FAERS Safety Report 9505189 (Version 1)
Quarter: 2013Q1

REPORT INFORMATION
  Report Type: Spontaneous
  Country: US (occurrence: None)
  Receive Date: 20130225
  Receipt Date: 20130225
  Transmission Date: 20140127
  Serious: No
  Sender: FDA-Public Use
  Company Number: 367182

PATIENT
  Sex: Female

DRUGS (3)
  1. VICTOZA (LIRAGLUTIDE) SOLUTION FOR INJECTION, 6MG/ML [Suspect]
     Indication: TYPE 1 DIABETES MELLITUS
     Dosage: 1.2 IN THE AM AND 0.6 IN THE EVENING, SUBCUTANEOUS
     Route: 058
  2. LEVEMIR (INSULIN DETEMIR) SOLUTION FOR INJECTION, .0024MOL/L [Suspect]
     Dosage: 6 UNIT IN THE MORNING, SUBCUTANEOUS
     Route: 058
  3. HUMALOG (INSULIN LISPRO) [Suspect]
     Indication: PRODUCT USED FOR UNKNOWN INDICATION

REACTIONS (1)
  - Blood glucose increased [None]
